FAERS Safety Report 18934913 (Version 1)
Quarter: 2021Q1

REPORT INFORMATION
  Report Type: Spontaneous
  Country: GB (occurrence: GB)
  Receive Date: 20210224
  Receipt Date: 20210224
  Transmission Date: 20210420
  Serious: Yes (Other)
  Sender: FDA-Public Use
  Company Number: GB-MYLANLABS-2021M1011053

PATIENT
  Age: 78 Year
  Sex: Female
  Weight: 58 kg

DRUGS (7)
  1. TRAMADOL. [Concomitant]
     Active Substance: TRAMADOL
     Dosage: TAKE 1 OR 2 EVERY 4?6 HOURS.
     Dates: start: 20210217
  2. INDAPAMIDE. [Suspect]
     Active Substance: INDAPAMIDE
     Indication: PRODUCT USED FOR UNKNOWN INDICATION
     Dosage: 2.5 MILLIGRAM, AM EACH MORNING.
     Dates: start: 20201208
  3. ALENDRONIC ACID [Concomitant]
     Active Substance: ALENDRONIC ACID
     Dosage: THE SAME DAY EACH WEEK.
     Dates: start: 20190816
  4. HYLO TEAR [Concomitant]
     Dosage: APPLY. OR AS REQUIRED.
     Dates: start: 20190816
  5. AMLODIPINE [Concomitant]
     Active Substance: AMLODIPINE BESYLATE
     Dosage: 1 DOSAGE FORM, QD
     Dates: start: 20201204, end: 20210101
  6. OMEPRAZOLE. [Concomitant]
     Active Substance: OMEPRAZOLE
     Dosage: IF TAKING IBUPROFEN REGULARLY.
     Dates: start: 20200715
  7. CALCICHEW D3 [Concomitant]
     Active Substance: CALCIUM\CHOLECALCIFEROL
     Dosage: 1 DOSAGE FORM, BID
     Dates: start: 20190816

REACTIONS (5)
  - Orthostatic hypotension [Recovered/Resolved with Sequelae]
  - Pelvic fracture [Unknown]
  - Hyponatraemia [Recovered/Resolved]
  - White blood cell count increased [Unknown]
  - Hypokalaemia [Recovered/Resolved]
